FAERS Safety Report 21342736 (Version 2)
Quarter: 2022Q3

REPORT INFORMATION
  Report Type: Report from Study
  Country: DE (occurrence: None)
  Receive Date: 20220916
  Receipt Date: 20220928
  Transmission Date: 20221026
  Serious: Yes (Hospitalization)
  Sender: FDA-Public Use
  Company Number: DE-ROCHE-3177559

PATIENT
  Age: 53 Year
  Sex: Male
  Weight: 75 kg

DRUGS (4)
  1. ATEZOLIZUMAB [Suspect]
     Active Substance: ATEZOLIZUMAB
     Indication: Ductal adenocarcinoma of pancreas
     Route: 041
     Dates: start: 20220407
  2. PELAREOREP [Suspect]
     Active Substance: PELAREOREP
     Indication: Ductal adenocarcinoma of pancreas
     Dosage: 4.5 X10X10 TCID50
     Route: 042
     Dates: start: 20220405
  3. GEMCITABINE [Suspect]
     Active Substance: GEMCITABINE
     Indication: Ductal adenocarcinoma of pancreas
     Route: 042
     Dates: start: 20220405
  4. PACLITAXEL [Suspect]
     Active Substance: PACLITAXEL
     Indication: Ductal adenocarcinoma of pancreas
     Route: 042
     Dates: start: 20220405

REACTIONS (1)
  - Acute kidney injury [Recovered/Resolved]

NARRATIVE: CASE EVENT DATE: 20220830
